FAERS Safety Report 7939216-6 (Version None)
Quarter: 2011Q4

REPORT INFORMATION
  Report Type: 
  Country: None (occurrence: None)
  Receive Date: 20111124
  Receipt Date: 20111109
  Transmission Date: 20120403
  Serious: Yes (Hospitalization)
  Sender: FDA-Public Use
  Company Number: DE-ROCHE-800586

PATIENT
  Sex: Male
  Weight: 93 kg

DRUGS (2)
  1. XELODA [Suspect]
     Indication: RECTAL CANCER
     Dosage: ACTUAL DOSE:2000 MG,SCHEDULED DOSE: 1000 MG/M2 BID D1-D15 OF 3 WEEK CYCLE
     Route: 048
  2. OXALIPLATIN [Suspect]
     Indication: RECTAL CANCER
     Dosage: ACTUAL DOSE:260 MG,SCHEDULED DOSE:130 MG/M2 BID, ON D1 OF 3 WEEK CYCLE.
     Route: 042

REACTIONS (2)
  - DEHYDRATION [None]
  - RENAL FAILURE [None]
